FAERS Safety Report 6028921-7 (Version None)
Quarter: 2009Q1

REPORT INFORMATION
  Report Type: 
  Country: None (occurrence: None)
  Receive Date: 20090102
  Receipt Date: 20081222
  Transmission Date: 20090719
  Serious: Yes (Other)
  Sender: FDA-Public Use
  Company Number: CHNY2008DE04465

PATIENT
  Age: 79 Year
  Sex: Female

DRUGS (2)
  1. LAMISIL [Suspect]
     Indication: TINEA PEDIS
     Dosage: 1 SINGLE APPLICATION DAILY, TOPICAL
     Route: 061
     Dates: start: 20081201, end: 20081210
  2. LAMOTRIGINE [Concomitant]

REACTIONS (1)
  - EPILEPSY [None]
